FAERS Safety Report 24702260 (Version 1)
Quarter: 2024Q4

REPORT INFORMATION
  Report Type: Spontaneous
  Country: US (occurrence: None)
  Receive Date: 20241204
  Receipt Date: 20241204
  Transmission Date: 20250115
  Serious: Yes (unspecified)
  Sender: Public
  Company Number: None

PATIENT
  Age: 78 Year
  Sex: Female
  Weight: 72 kg

DRUGS (5)
  1. PIOGLITAZONE HYDROCHLORIDE [Suspect]
     Active Substance: PIOGLITAZONE HYDROCHLORIDE
     Indication: Type 2 diabetes mellitus
     Dosage: 1 TABLET DAILY ORAL
     Route: 048
     Dates: start: 20241201, end: 20241202
  2. OMEPRAZOLE [Concomitant]
     Active Substance: OMEPRAZOLE
  3. LOSARTAN [Concomitant]
     Active Substance: LOSARTAN
  4. PRAVASTATIN [Concomitant]
     Active Substance: PRAVASTATIN
  5. CITALOPRAM [Concomitant]
     Active Substance: CITALOPRAM

REACTIONS (3)
  - Pain in jaw [None]
  - Toothache [None]
  - Neuralgia [None]

NARRATIVE: CASE EVENT DATE: 20241201
